FAERS Safety Report 4688010-0 (Version None)
Quarter: 2005Q2

REPORT INFORMATION
  Report Type: 
  Country: None (occurrence: None)
  Receive Date: 20050610
  Receipt Date: 20050606
  Transmission Date: 20051028
  Serious: Yes (Death, Other)
  Sender: FDA-Public Use
  Company Number: 2005UW08701

PATIENT
  Age: 94 Year
  Sex: Male

DRUGS (1)
  1. IRESSA [Suspect]
     Indication: NEOPLASM MALIGNANT
     Route: 048
     Dates: start: 20050301

REACTIONS (3)
  - DIARRHOEA [None]
  - SEPSIS [None]
  - URINARY TRACT INFECTION [None]
